FAERS Safety Report 6413304-8 (Version None)
Quarter: 2009Q4

REPORT INFORMATION
  Report Type: 
  Country: None (occurrence: None)
  Receive Date: 20091026
  Receipt Date: 20091012
  Transmission Date: 20100525
  Serious: Yes (Other)
  Sender: FDA-Public Use
  Company Number: US-ROCHE-662605

PATIENT
  Sex: Female

DRUGS (3)
  1. PEGASYS [Suspect]
     Indication: DRUG USE FOR UNKNOWN INDICATION
     Dosage: FORM:PFS
     Route: 065
     Dates: start: 20080518, end: 20090412
  2. COPEGUS [Suspect]
     Indication: DRUG USE FOR UNKNOWN INDICATION
     Dosage: DIVIDED DOSES
     Route: 065
     Dates: start: 20080518, end: 20090412
  3. PREDNISONE [Concomitant]
     Indication: ASTHMA
     Dosage: TAKEN EVERY OTHER DAY

REACTIONS (8)
  - FOOD INTOLERANCE [None]
  - INCREASED INSULIN REQUIREMENT [None]
  - JOINT SWELLING [None]
  - MUSCULAR WEAKNESS [None]
  - NAUSEA [None]
  - STRESS FRACTURE [None]
  - WEIGHT DECREASED [None]
  - WEIGHT INCREASED [None]
